FAERS Safety Report 7936392-6 (Version None)
Quarter: 2011Q4

REPORT INFORMATION
  Report Type: 
  Country: None (occurrence: None)
  Receive Date: 20111121
  Receipt Date: 20111106
  Transmission Date: 20120403
  Serious: Yes (Other)
  Sender: FDA-Public Use
  Company Number: FK201102611

PATIENT
  Age: 61 Year
  Sex: Male

DRUGS (3)
  1. DEXAMETHASONE SODIUM PHOSPHATE [Concomitant]
  2. PENTAMIDINE ISETHIONATE [Suspect]
     Indication: PNEUMONIA
     Dosage: INTRAVENOUS (NOT SPECIFIED)
     Route: 042
  3. LEVOFLOXACIN (MANUFACTURER UNKNOWN) (LEVOFLOXACIN0 (LEVOFLOXACIN) [Concomitant]

REACTIONS (27)
  - PLATELET COUNT DECREASED [None]
  - POSTERIOR REVERSIBLE ENCEPHALOPATHY SYNDROME [None]
  - HYPERKALAEMIA [None]
  - PULMONARY TOXICITY [None]
  - TOXICITY TO VARIOUS AGENTS [None]
  - ORGANISING PNEUMONIA [None]
  - PNEUMONIA ASPIRATION [None]
  - BLOOD PRESSURE INCREASED [None]
  - RESPIRATORY DISTRESS [None]
  - RENAL FAILURE [None]
  - POTENTIATING DRUG INTERACTION [None]
  - FIBROSIS [None]
  - KIDNEY FIBROSIS [None]
  - CONFUSIONAL STATE [None]
  - HAEMODIALYSIS [None]
  - VISUAL ACUITY REDUCED [None]
  - GRANULOMA [None]
  - DIFFUSE ALVEOLAR DAMAGE [None]
  - ALVEOLITIS [None]
  - LIPIDS INCREASED [None]
  - RENAL TUBULAR ATROPHY [None]
  - THROMBOTIC MICROANGIOPATHY [None]
  - CONVULSION [None]
  - PULMONARY FIBROSIS [None]
  - BRONCHIECTASIS [None]
  - PNEUMONITIS [None]
  - OBLITERATIVE BRONCHIOLITIS [None]
